FAERS Safety Report 15721325 (Version 1)
Quarter: 2018Q4

REPORT INFORMATION
  Report Type: Spontaneous
  Country: AU (occurrence: AU)
  Receive Date: 20181214
  Receipt Date: 20181214
  Transmission Date: 20190205
  Serious: Yes (Other)
  Sender: FDA-Public Use
  Company Number: AU-ACCORD-095666

PATIENT
  Age: 63 Year
  Sex: Male

DRUGS (2)
  1. CYTARABINE. [Suspect]
     Active Substance: CYTARABINE
     Indication: PLASMA CELL MYELOMA
     Dosage: FOUR DOSES ON DAYS 2 TO 3
     Route: 037
  2. METHOTREXATE. [Suspect]
     Active Substance: METHOTREXATE
     Indication: PLASMA CELL MYELOMA
     Dosage: 3500 MG/M2, 1 CYCLE (HIGH-DOSE METHOTREXATE, ON DAY 1)
     Route: 037

REACTIONS (3)
  - Enterocolitis [Unknown]
  - Febrile neutropenia [Unknown]
  - Intestinal pseudo-obstruction [Unknown]
